FAERS Safety Report 24134333 (Version 2)
Quarter: 2024Q3

REPORT INFORMATION
  Report Type: Spontaneous
  Country: CA (occurrence: CA)
  Receive Date: 20240725
  Receipt Date: 20240727
  Transmission Date: 20241017
  Serious: Yes (Other)
  Sender: CELLTRION
  Company Number: CA-PFIZER INC-PV202400093777

PATIENT

DRUGS (8)
  1. INFLECTRA [Suspect]
     Active Substance: INFLIXIMAB-DYYB
     Indication: Crohn^s disease
     Dosage: 700 MG EVERY 6 WEEKS
     Route: 042
     Dates: start: 20191114
  2. INFLECTRA [Suspect]
     Active Substance: INFLIXIMAB-DYYB
     Dosage: 700 MG EVERY 6 WEEKS
     Dates: start: 20240716
  3. SALAZOPYRINE [Concomitant]
     Active Substance: SULFASALAZINE
     Indication: Crohn^s disease
     Dosage: 1500 MG, DAILY
     Route: 048
  4. REPATHA [Concomitant]
     Active Substance: EVOLOCUMAB
     Indication: Hypercholesterolaemia
     Dosage: 140 MG EVERY 2 WEEKS
     Route: 058
     Dates: start: 202302
  5. METOPROLOL [Concomitant]
     Active Substance: METOPROLOL
     Indication: Myocardial infarction
     Dosage: 25 MG, DAILY
     Route: 048
  6. PLAVIX [Concomitant]
     Active Substance: CLOPIDOGREL BISULFATE
     Dosage: UNK
     Route: 048
     Dates: end: 202407
  7. TAMSULOSIN [Concomitant]
     Active Substance: TAMSULOSIN
     Dosage: 0.4 MG, DAILY
     Route: 048
     Dates: start: 202302
  8. APO COLESEVELAM [Concomitant]
     Indication: Crohn^s disease
     Dosage: 1250 MG, DAILY
     Route: 048
     Dates: start: 20210525

REACTIONS (5)
  - Fall [Recovering/Resolving]
  - Head injury [Recovering/Resolving]
  - Intra-abdominal haematoma [Recovering/Resolving]
  - Fatigue [Not Recovered/Not Resolved]
  - Renal mass [Unknown]
